FAERS Safety Report 9499058 (Version 1)
Quarter: 2013Q3

REPORT INFORMATION
  Report Type: Spontaneous
  Country: ZA (occurrence: ZA)
  Receive Date: 20130904
  Receipt Date: 20130904
  Transmission Date: 20140515
  Serious: Yes (Death, Congenital Anomaly)
  Sender: FDA-Public Use
  Company Number: ZA-GILEAD-2013-0082533

PATIENT
  Sex: 0

DRUGS (13)
  1. VIREAD [Suspect]
     Indication: HIV INFECTION
     Dosage: UNK
     Route: 064
     Dates: end: 201206
  2. DOXORUBICIN [Suspect]
     Indication: KAPOSI^S SARCOMA
     Dosage: UNK
     Route: 064
     Dates: start: 201202
  3. DOXORUBICIN [Suspect]
     Dosage: UNK
  4. VINCRISTINE [Suspect]
     Indication: KAPOSI^S SARCOMA
     Dosage: UNK
     Route: 064
     Dates: start: 201202
  5. VINCRISTINE [Suspect]
     Dosage: UNK
     Route: 064
  6. EFAVIRENZ [Concomitant]
     Indication: HIV INFECTION
     Dosage: UNK
     Route: 064
     Dates: end: 201206
  7. LAMIVUDINE [Concomitant]
     Indication: HIV INFECTION
     Dosage: UNK
     Route: 064
     Dates: end: 201206
  8. BLEOMYCIN [Concomitant]
     Indication: KAPOSI^S SARCOMA
     Dosage: UNK
     Route: 064
  9. BLEOMYCIN [Concomitant]
     Dosage: UNK
     Route: 064
  10. HEPARIN [Concomitant]
     Dosage: UNK
     Route: 064
     Dates: start: 201206, end: 201206
  11. RIFAFOUR [Concomitant]
     Indication: TUBERCULOSIS
     Dosage: UNK
     Route: 064
     Dates: start: 2012, end: 201206
  12. CLARITHROMYCIN [Concomitant]
     Dosage: UNK
     Route: 064
     Dates: start: 201206, end: 201206
  13. TRIMETHOPRIM SULFAMETHOXAZOLE [Concomitant]
     Indication: ANTIFUNGAL PROPHYLAXIS
     Dosage: UNK
     Route: 064
     Dates: start: 201206, end: 201206

REACTIONS (1)
  - Microcephaly [Fatal]
